FAERS Safety Report 22253268 (Version 4)
Quarter: 2023Q4

REPORT INFORMATION
  Report Type: Report from Study
  Country: US (occurrence: US)
  Receive Date: 20230426
  Receipt Date: 20231007
  Transmission Date: 20240110
  Serious: No
  Sender: FDA-Public Use
  Company Number: US-002147023-NVSC2023US094523

PATIENT
  Sex: Female

DRUGS (1)
  1. MAYZENT [Suspect]
     Active Substance: SIPONIMOD
     Indication: Multiple sclerosis
     Dosage: 2 MG, QMO
     Route: 048

REACTIONS (4)
  - Illness [Unknown]
  - Pain [Unknown]
  - Gait disturbance [Recovered/Resolved]
  - Fatigue [Recovering/Resolving]
